FAERS Safety Report 6829770-X (Version None)
Quarter: 2010Q3

REPORT INFORMATION
  Report Type: 
  Country: None (occurrence: None)
  Receive Date: 20100709
  Receipt Date: 20080905
  Transmission Date: 20110219
  Serious: Yes (Hospitalization, Other)
  Sender: FDA-Public Use
  Company Number: US-PFIZER INC-2007005267

PATIENT
  Sex: Female

DRUGS (3)
  1. CHANTIX [Suspect]
     Dates: start: 20061201, end: 20080401
  2. SPIRIVA [Concomitant]
  3. FORADIL [Concomitant]

REACTIONS (6)
  - ASTHMA [None]
  - CHRONIC OBSTRUCTIVE PULMONARY DISEASE [None]
  - DRUG INEFFECTIVE [None]
  - DYSPNOEA [None]
  - NON-CARDIAC CHEST PAIN [None]
  - PAROSMIA [None]
